FAERS Safety Report 22118714 (Version 3)
Quarter: 2025Q1

REPORT INFORMATION
  Report Type: Report from Study
  Country: US (occurrence: US)
  Receive Date: 20230321
  Receipt Date: 20250228
  Transmission Date: 20250409
  Serious: Yes (Hospitalization, Other)
  Sender: TAKEDA
  Company Number: US-TAKEDA-2023TUS017845

PATIENT
  Age: 66 Year
  Sex: Male
  Weight: 86.168 kg

DRUGS (16)
  1. HUMAN IMMUNOGLOBULIN G [Suspect]
     Active Substance: HUMAN IMMUNOGLOBULIN G
     Indication: Selective IgG subclass deficiency
     Dosage: 12 GRAM, Q2WEEKS
     Dates: start: 20220701
  2. LANOLIN [Suspect]
     Active Substance: LANOLIN
     Indication: Product used for unknown indication
  3. DIPHENHYDRAMINE [Concomitant]
     Active Substance: DIPHENHYDRAMINE
  4. DIPHENHYDRAMINE HYDROCHLORIDE [Concomitant]
     Active Substance: DIPHENHYDRAMINE HYDROCHLORIDE
  5. METOPROLOL SUCCINATE [Concomitant]
     Active Substance: METOPROLOL SUCCINATE
  6. ACYCLOVIR [Concomitant]
     Active Substance: ACYCLOVIR
  7. EPINEPHRINE [Concomitant]
     Active Substance: EPINEPHRINE
  8. ATORVASTATIN CALCIUM [Concomitant]
     Active Substance: ATORVASTATIN CALCIUM
  9. ACETAMINOPHEN [Concomitant]
     Active Substance: ACETAMINOPHEN
  10. Glucosamine Chondroitin with vitamin D3 extra strength Premium Formula [Concomitant]
  11. MINERALS\VITAMINS [Concomitant]
     Active Substance: MINERALS\VITAMINS
  12. XARELTO [Concomitant]
     Active Substance: RIVAROXABAN
  13. KRILL OIL [Concomitant]
     Active Substance: DIETARY SUPPLEMENT\KRILL OIL
  14. VITAMIN A [Concomitant]
     Active Substance: VITAMIN A
  15. LIDOCAINE [Concomitant]
     Active Substance: LIDOCAINE
  16. JAYPIRCA [Concomitant]
     Active Substance: PIRTOBRUTINIB

REACTIONS (4)
  - Chronic leukaemia [Unknown]
  - Nasopharyngitis [Unknown]
  - COVID-19 [Recovered/Resolved]
  - Drug hypersensitivity [Unknown]

NARRATIVE: CASE EVENT DATE: 20250101
